FAERS Safety Report 9699322 (Version 1)
Quarter: 2013Q4

REPORT INFORMATION
  Report Type: Spontaneous
  Country: US (occurrence: US)
  Receive Date: 20131120
  Receipt Date: 20131120
  Transmission Date: 20140711
  Serious: No
  Sender: FDA-Public Use
  Company Number: US-GILEAD-2008-0015732

PATIENT
  Age: 56 Year
  Sex: Female
  Weight: 72.57 kg

DRUGS (10)
  1. LETAIRIS [Suspect]
     Indication: PULMONARY ARTERIAL HYPERTENSION
     Route: 048
     Dates: start: 20080123
  2. ADVAIR [Concomitant]
     Route: 055
  3. FLONASE [Concomitant]
     Route: 055
  4. ALBUTEROL [Concomitant]
     Route: 048
  5. DIOVAN [Concomitant]
     Route: 048
  6. PREDNISONE [Concomitant]
     Route: 048
  7. METHOTREXATE [Concomitant]
     Route: 048
  8. ASA FREE [Concomitant]
     Route: 048
  9. IRON [Concomitant]
     Route: 048
  10. FOSAMAX [Concomitant]
     Route: 048

REACTIONS (3)
  - Pruritus [Not Recovered/Not Resolved]
  - Nasal congestion [Not Recovered/Not Resolved]
  - Headache [Not Recovered/Not Resolved]
